FAERS Safety Report 8392764-X (Version None)
Quarter: 2012Q2

REPORT INFORMATION
  Report Type: 
  Country: None (occurrence: None)
  Receive Date: 20120529
  Receipt Date: 20120518
  Transmission Date: 20120825
  Serious: Yes (Other)
  Sender: FDA-Public Use
  Company Number: JP-VERTEX PHARMACEUTICALS INC.-AE-2012-005500

PATIENT
  Age: 50 Year
  Sex: Male

DRUGS (19)
  1. CLOBETASOL PROPIONATE [Concomitant]
     Route: 061
     Dates: start: 20120112
  2. POLARAMINE [Concomitant]
     Route: 048
     Dates: start: 20120116, end: 20120119
  3. TELAVIC (TELAPREVIR) [Suspect]
     Indication: HEPATITIS C
     Route: 048
     Dates: start: 20120105
  4. PEGINTERFERON ALFA-2B [Concomitant]
     Route: 051
     Dates: start: 20120309
  5. BETAMETHASONE [Concomitant]
     Route: 061
     Dates: start: 20120110
  6. PREDNISOLONE [Concomitant]
     Route: 048
     Dates: start: 20120116
  7. MUCOSTA [Concomitant]
     Route: 048
     Dates: start: 20120113, end: 20120119
  8. PEGINTERFERON ALFA-2B [Concomitant]
     Indication: HEPATITIS C
     Route: 051
     Dates: start: 20120105, end: 20120302
  9. EPINASTINE HYDROCHLORIDE [Concomitant]
     Route: 048
     Dates: start: 20120213
  10. EPINASTINE HYDROCHLORIDE [Concomitant]
     Route: 048
     Dates: start: 20120116
  11. RIBAVIRIN [Concomitant]
     Route: 048
     Dates: start: 20120309
  12. PREDNISOLONE [Concomitant]
     Route: 048
     Dates: start: 20120113
  13. MYSER 0..5% [Concomitant]
     Route: 061
     Dates: start: 20120110
  14. RIBAVIRIN [Concomitant]
     Route: 048
     Dates: start: 20120224, end: 20120308
  15. EPINASTINE HYDROCHLORIDE [Concomitant]
     Route: 048
     Dates: start: 20120110
  16. RIBAVIRIN [Concomitant]
     Indication: HEPATITIS C
     Route: 048
     Dates: start: 20120105, end: 20120223
  17. EPINASTINE HYDROCHLORIDE [Concomitant]
     Route: 048
     Dates: start: 20120112
  18. ATARAX [Concomitant]
     Route: 048
     Dates: start: 20120112
  19. MUCOSTA [Concomitant]
     Route: 048
     Dates: start: 20120116

REACTIONS (2)
  - INTRAOCULAR PRESSURE INCREASED [None]
  - HAEMOGLOBIN DECREASED [None]
